FAERS Safety Report 12790431 (Version 1)
Quarter: 2016Q3

REPORT INFORMATION
  Report Type: Spontaneous
  Country: FR (occurrence: FR)
  Receive Date: 20160929
  Receipt Date: 20160929
  Transmission Date: 20161109
  Serious: Yes (Death, Other)
  Sender: FDA-Public Use
  Company Number: FR-009507513-1609FRA012998

PATIENT
  Age: 69 Year
  Sex: Male

DRUGS (1)
  1. TEMODAL [Suspect]
     Active Substance: TEMOZOLOMIDE
     Route: 042

REACTIONS (1)
  - Death [Fatal]

NARRATIVE: CASE EVENT DATE: 201501
